FAERS Safety Report 14349274 (Version 1)
Quarter: 2018Q1

REPORT INFORMATION
  Report Type: Spontaneous
  Country: FR (occurrence: FR)
  Receive Date: 20180104
  Receipt Date: 20180104
  Transmission Date: 20180509
  Serious: Yes (Hospitalization)
  Sender: FDA-Public Use
  Company Number: FR-SUN PHARMACEUTICAL INDUSTRIES LTD-2017RR-158810

PATIENT
  Age: 70 Year
  Sex: Male
  Weight: 85 kg

DRUGS (11)
  1. LASILIX (FUROSEMIDE) [Interacting]
     Active Substance: FUROSEMIDE
     Indication: HYPERTENSION
     Dosage: 250 MG, UNK
     Route: 048
     Dates: end: 20170705
  2. INEXIUM 40 MG, COMPRIME GASTRO-RESISTANT [Concomitant]
     Indication: GASTRITIS
     Dosage: 1 DF, UNK
     Route: 048
     Dates: end: 20170621
  3. XARELTO 10 MG, COMPRIME PELLICULE [Concomitant]
     Indication: PRODUCT USED FOR UNKNOWN INDICATION
     Dosage: 1 DF, UNK
     Route: 048
  4. FORLAX 10 G, POUDRE POUR SOLUTION BUVABLE EN SACHET-DOSE [Concomitant]
     Indication: CONSTIPATION
     Dosage: 1 DF, UNK
     Route: 048
     Dates: end: 20170619
  5. MONOPROST [Concomitant]
     Active Substance: LATANOPROST
     Indication: GLAUCOMA
     Dosage: 1 GTT, UNK
     Route: 047
  6. DIFFU K, GELULE [Concomitant]
     Active Substance: POTASSIUM CHLORIDE
     Indication: HYPOKALAEMIA
     Dosage: 4 DF, UNK
     Route: 048
     Dates: end: 20170619
  7. PRAVASTATINE SODIQUE [Concomitant]
     Active Substance: PRAVASTATIN SODIUM
     Indication: DYSLIPIDAEMIA
     Dosage: 20 MG, UNK
     Route: 048
  8. BISOPROLOL (FUMARATE ACIDE DE) [Concomitant]
     Active Substance: BISOPROLOL FUMARATE
     Indication: HYPERTENSION
     Dosage: 1.25 MG, UNK
     Route: 048
     Dates: end: 20170620
  9. DOLIPRANE 1000 MG, COMPRIME [Concomitant]
     Indication: PAIN
     Dosage: 3 DF, UNK
     Route: 048
  10. SPIRONOLACTONE. [Suspect]
     Active Substance: SPIRONOLACTONE
     Indication: HYPERTENSION
     Dosage: 50 MG, UNK
     Route: 048
     Dates: end: 20170620
  11. SPECIAFOLDINE 5 MG, COMPRIME [Concomitant]
     Active Substance: FOLIC ACID
     Indication: PRODUCT USED FOR UNKNOWN INDICATION
     Dosage: 1 DF, UNK
     Route: 048
     Dates: end: 20170704

REACTIONS (2)
  - Acute kidney injury [Recovered/Resolved]
  - Drug interaction [Recovered/Resolved]

NARRATIVE: CASE EVENT DATE: 20170619
